FAERS Safety Report 19055987 (Version 3)
Quarter: 2021Q2

REPORT INFORMATION
  Report Type: Report from Study
  Country: None (occurrence: RO)
  Receive Date: 20210325
  Receipt Date: 20210427
  Transmission Date: 20210717
  Serious: Yes (Hospitalization)
  Sender: FDA-Public Use
  Company Number: RO-ABBVIE-21K-135-3829508-00

PATIENT
  Age: 50 Year
  Sex: Male

DRUGS (2)
  1. DUODOPA [Suspect]
     Active Substance: CARBIDOPA\LEVODOPA
  2. DUODOPA [Suspect]
     Active Substance: CARBIDOPA\LEVODOPA
     Indication: PARKINSON^S DISEASE
     Dosage: DM 5.50, DC 2.50, ED 1.50, NRED 0, DMN 0.00, DCN 0.00, EDN 0.00, NREDN 0.
     Route: 050
     Dates: start: 20190913

REACTIONS (12)
  - Vomiting [Recovered/Resolved]
  - Abdominal pain [Recovered/Resolved]
  - Intussusception [Recovered/Resolved]
  - Device placement issue [Recovered/Resolved]
  - Abdominal pain [Recovered/Resolved]
  - General physical condition abnormal [Recovering/Resolving]
  - Abdominal pain [Recovered/Resolved]
  - Vomiting [Recovered/Resolved]
  - Oesophagitis [Recovered/Resolved]
  - Gastrointestinal oedema [Recovering/Resolving]
  - Gastrointestinal mucosal disorder [Recovering/Resolving]
  - Vomiting [Recovered/Resolved]

NARRATIVE: CASE EVENT DATE: 202103
